FAERS Safety Report 18641513 (Version 2)
Quarter: 2021Q1

REPORT INFORMATION
  Report Type: Spontaneous
  Country: DE (occurrence: DE)
  Receive Date: 20201221
  Receipt Date: 20210111
  Transmission Date: 20210419
  Serious: Yes (Other)
  Sender: FDA-Public Use
  Company Number: DE-AUROBINDO-AUR-APL-2020-061148

PATIENT
  Sex: Male

DRUGS (59)
  1. ALLOPURINOL. [Concomitant]
     Active Substance: ALLOPURINOL
     Indication: PRODUCT USED FOR UNKNOWN INDICATION
     Dosage: 100 MILLIGRAM, ONCE A DAY
     Route: 048
  2. ALLOPURINOL. [Concomitant]
     Active Substance: ALLOPURINOL
     Indication: PROPHYLAXIS
     Dosage: 300 MILLIGRAM, ONCE A DAY
     Route: 048
     Dates: start: 20190404
  3. CIPROBAY [CIPROFLOXACIN HYDROCHLORIDE] [Concomitant]
     Active Substance: CIPROFLOXACIN HYDROCHLORIDE
     Dosage: 500 MILLIGRAM (TOTAL)
     Route: 048
     Dates: start: 20190416
  4. CALCILAC [Concomitant]
     Active Substance: CALCIUM CARBONATE
     Indication: PROPHYLAXIS
     Dosage: 1000 MILLIGRAM, ONCE A DAY
     Route: 048
     Dates: start: 20190415
  5. DEKRISTOL [Concomitant]
     Active Substance: CHOLECALCIFEROL
     Indication: PRODUCT USED FOR UNKNOWN INDICATION
     Dosage: 20000 INTERNATIONAL UNIT (TOTAL)
     Route: 048
     Dates: start: 20190415
  6. FLUCONAZOL [Concomitant]
     Active Substance: FLUCONAZOLE
     Indication: PROPHYLAXIS
     Dosage: 200 MILLIGRAM, ONCE A DAY
     Route: 048
     Dates: start: 20190411
  7. METFORMIN [Concomitant]
     Active Substance: METFORMIN HYDROCHLORIDE
     Indication: PREMEDICATION
     Dosage: 500 MILLIGRAM, TWO TIMES A DAY
     Route: 048
  8. RATIOGRASTIM [Concomitant]
     Active Substance: FILGRASTIM
     Indication: PRODUCT USED FOR UNKNOWN INDICATION
     Dosage: 48 MEGA?INTERNATIONAL UNIT, TWO TIMES A DAY
     Route: 058
     Dates: start: 20190408, end: 20190414
  9. VOMEX A [Concomitant]
     Active Substance: DIMENHYDRINATE
     Dosage: 62 MILLIGRAM, 3 TIMES A DAY
     Route: 042
     Dates: start: 20190419
  10. TOREM [Concomitant]
     Active Substance: TORSEMIDE
     Indication: PREMEDICATION
     Dosage: 10 MILLIGRAM, TWO TIMES A DAY
     Route: 048
  11. CIPROBAY [CIPROFLOXACIN HYDROCHLORIDE] [Concomitant]
     Active Substance: CIPROFLOXACIN HYDROCHLORIDE
     Indication: PROPHYLAXIS
     Dosage: 500 MILLIGRAM, TWO TIMES A DAY
     Route: 048
     Dates: start: 20190411, end: 20190415
  12. CYCLOPHOSPHAMIDE. [Concomitant]
     Active Substance: CYCLOPHOSPHAMIDE
     Indication: PRODUCT USED FOR UNKNOWN INDICATION
     Dosage: 7612 MILLIGRAM (TOTAL)
     Route: 042
     Dates: start: 20190405
  13. GRANISETRON HAMELN [Concomitant]
     Indication: PROPHYLAXIS
     Dosage: 3 MILLIGRAM (TOTAL)
     Route: 042
     Dates: start: 20190405
  14. GRANISETRON HAMELN [Concomitant]
     Dosage: 3 MILLIGRAM (TOTAL)
     Route: 042
     Dates: start: 20190416
  15. JANUVIA [Concomitant]
     Active Substance: SITAGLIPTIN PHOSPHATE
     Indication: PREMEDICATION
     Dosage: 100 MILLIGRAM, ONCE A DAY
     Route: 048
     Dates: end: 20190421
  16. LASIX [Concomitant]
     Active Substance: FUROSEMIDE
     Indication: PROPHYLAXIS
     Dosage: UNK UNK, PRN (INFREQUENT, AS REQUIRED)
     Route: 042
     Dates: start: 20190405
  17. PARACETAMOL KABI [Concomitant]
     Active Substance: ACETAMINOPHEN
     Indication: PRODUCT USED FOR UNKNOWN INDICATION
     Dosage: 1000 MILLIGRAM, ONCE A DAY
     Route: 042
     Dates: start: 20190416
  18. RATIOGRASTIM [Concomitant]
     Active Substance: FILGRASTIM
     Dosage: 48 MEGA?INTERNATIONAL UNIT, TWO TIMES A DAY
     Route: 058
     Dates: start: 20190418, end: 20190422
  19. VOMEX A [Concomitant]
     Active Substance: DIMENHYDRINATE
     Indication: PROPHYLAXIS
     Dosage: 62 MILLIGRAM, ONCE A DAY
     Route: 042
     Dates: start: 20190406
  20. VOMEX A [Concomitant]
     Active Substance: DIMENHYDRINATE
     Dosage: 62 MILLIGRAM, TWO TIMES A DAY
     Route: 042
     Dates: start: 20190407
  21. ZOPICLONE RATIOPHARM [Concomitant]
     Indication: PRODUCT USED FOR UNKNOWN INDICATION
     Dosage: UNK
     Route: 065
  22. GRANISETRON RATIOPHARM [Concomitant]
     Indication: PROPHYLAXIS
     Dosage: 2 MILLIGRAM, ONCE A DAY
     Route: 048
     Dates: start: 20190415
  23. KCL [Concomitant]
     Active Substance: POTASSIUM CHLORIDE
     Indication: PRODUCT USED FOR UNKNOWN INDICATION
     Dosage: 50 MILLILITER, ONCE A DAY
     Route: 042
     Dates: start: 20190407
  24. MCP?RATIOPHARM [Concomitant]
     Active Substance: METOCLOPRAMIDE HYDROCHLORIDE
     Dosage: 10 MILLIGRAM, TWO TIMES A DAY
     Route: 042
     Dates: start: 20190422
  25. RINGER ACETATE [Concomitant]
     Active Substance: CALCIUM CHLORIDE\POTASSIUM CHLORIDE\SODIUM ACETATE
     Indication: PRODUCT USED FOR UNKNOWN INDICATION
     Dosage: 1000 MILLILITER, ONCE A DAY
     Route: 042
     Dates: start: 20190407, end: 20190408
  26. VOMEX A [Concomitant]
     Active Substance: DIMENHYDRINATE
     Dosage: 62 MILLIGRAM, ONCE A DAY
     Route: 042
     Dates: start: 20190414
  27. VOMEX A [Concomitant]
     Active Substance: DIMENHYDRINATE
     Dosage: 62 MILLIGRAM, 3 TIMES A DAY
     Route: 042
     Dates: start: 20190415
  28. AMBISOME [Concomitant]
     Active Substance: AMPHOTERICIN B
     Indication: PRODUCT USED FOR UNKNOWN INDICATION
     Dosage: 150 MILLIGRAM, ONCE A DAY
     Route: 042
     Dates: start: 20190416
  29. BUSCOPAN [Concomitant]
     Active Substance: BUTYLSCOPOLAMINE BROMIDE
     Indication: PRODUCT USED FOR UNKNOWN INDICATION
     Dosage: 20 MILLIGRAM, ONCE A DAY
     Route: 048
     Dates: start: 20190407
  30. INSUMAN RAPID [Concomitant]
     Active Substance: INSULIN HUMAN
     Indication: PRODUCT USED FOR UNKNOWN INDICATION
     Dosage: 14 INTERNATIONAL UNIT, ONCE A DAY
     Route: 058
     Dates: start: 20190405
  31. MESNA. [Concomitant]
     Active Substance: MESNA
     Indication: PRODUCT USED FOR UNKNOWN INDICATION
     Dosage: UNK UNK, ONCE A DAY
     Route: 042
     Dates: start: 20190405
  32. RATIOGRASTIM [Concomitant]
     Active Substance: FILGRASTIM
     Dosage: 48 MEGA?INTERNATIONAL UNIT, 3 TIMES A DAY
     Route: 058
     Dates: start: 20190415, end: 20190417
  33. VOMEX A [Concomitant]
     Active Substance: DIMENHYDRINATE
     Dosage: 62 MILLIGRAM, ONCE A DAY
     Route: 042
     Dates: start: 20190416
  34. VOMEX A [Concomitant]
     Active Substance: DIMENHYDRINATE
     Dosage: 62 MILLIGRAM, TWO TIMES A DAY
     Route: 042
     Dates: start: 20190420
  35. INSULIN HUMAN [Suspect]
     Active Substance: INSULIN HUMAN
     Indication: PRODUCT USED FOR UNKNOWN INDICATION
     Dosage: UNK
     Route: 065
  36. DEXA [Concomitant]
     Indication: PROPHYLAXIS
     Dosage: 8 MILLIGRAM, TWO TIMES A DAY
     Route: 042
     Dates: start: 20190405
  37. JANUVIA [Concomitant]
     Active Substance: SITAGLIPTIN PHOSPHATE
     Dosage: 50 MILLIGRAM, ONCE A DAY
     Route: 048
     Dates: start: 20190424
  38. KALINOR RETARD P [Concomitant]
     Active Substance: POTASSIUM CHLORIDE
     Indication: PRODUCT USED FOR UNKNOWN INDICATION
     Dosage: 600 MILLIGRAM, 3 TIMES A DAY
     Route: 048
     Dates: start: 20190409, end: 20190422
  39. MCP?RATIOPHARM [Concomitant]
     Active Substance: METOCLOPRAMIDE HYDROCHLORIDE
     Indication: PROPHYLAXIS
     Dosage: 10 MILLIGRAM, TWO TIMES A DAY
     Route: 048
     Dates: start: 20190414
  40. MCP?RATIOPHARM [Concomitant]
     Active Substance: METOCLOPRAMIDE HYDROCHLORIDE
     Dosage: 10 MILLIGRAM, 3 TIMES A DAY
     Route: 042
     Dates: start: 20190417, end: 20190421
  41. MCP?RATIOPHARM [Concomitant]
     Active Substance: METOCLOPRAMIDE HYDROCHLORIDE
     Dosage: 10 MILLIGRAM, ONCE A DAY
     Route: 042
     Dates: start: 20190423
  42. RINGER ACETATE [Concomitant]
     Active Substance: CALCIUM CHLORIDE\POTASSIUM CHLORIDE\SODIUM ACETATE
     Dosage: 1000 MILLILITER, ONCE A DAY
     Route: 042
     Dates: start: 20190416
  43. ZOLEDRONSAEURE HAMELN [Concomitant]
     Indication: PRODUCT USED FOR UNKNOWN INDICATION
     Dosage: 4 MILLIGRAM, ONCE A DAY
     Route: 042
     Dates: start: 20190415
  44. RAMIPRIL. [Suspect]
     Active Substance: RAMIPRIL
     Indication: PRODUCT USED FOR UNKNOWN INDICATION
     Dosage: UNK
     Route: 065
  45. DEKRISTOL [Concomitant]
     Active Substance: CHOLECALCIFEROL
     Dosage: 20000 INTERNATIONAL UNIT (TOTAL)
     Route: 048
     Dates: start: 20190429
  46. GRANISETRON HAMELN [Concomitant]
     Dosage: 3 MILLIGRAM (TOTAL)
     Route: 042
     Dates: start: 20190407
  47. MCP?RATIOPHARM [Concomitant]
     Active Substance: METOCLOPRAMIDE HYDROCHLORIDE
     Dosage: 10 MILLIGRAM, ONCE A DAY
     Route: 048
     Dates: start: 20190415
  48. VALTREX [Concomitant]
     Active Substance: VALACYCLOVIR HYDROCHLORIDE
     Indication: PROPHYLAXIS
     Dosage: 500 MILLIGRAM, TWO TIMES A DAY
     Route: 048
     Dates: start: 20190404
  49. APONAL [Concomitant]
     Active Substance: DOXEPIN HYDROCHLORIDE
     Indication: PRODUCT USED FOR UNKNOWN INDICATION
     Dosage: 25 MILLIGRAM, ONCE A DAY
     Route: 048
     Dates: start: 20190414
  50. DEKRISTOL [Concomitant]
     Active Substance: CHOLECALCIFEROL
     Dosage: 20000 INTERNATIONAL UNIT (TOTAL)
     Route: 048
     Dates: start: 20190422
  51. KALINOR RETARD P [Concomitant]
     Active Substance: POTASSIUM CHLORIDE
     Dosage: 600 MILLIGRAM, TWO TIMES A DAY
     Route: 048
     Dates: start: 20190423
  52. RESONIUM A [Concomitant]
     Active Substance: SODIUM POLYSTYRENE SULFONATE
     Indication: PRODUCT USED FOR UNKNOWN INDICATION
     Dosage: 15 GRAM, ONCE A DAY
     Route: 048
     Dates: start: 20190424
  53. PANTOPRAZOL [Concomitant]
     Active Substance: PANTOPRAZOLE SODIUM
     Indication: PROPHYLAXIS
     Dosage: 40 MILLIGRAM, ONCE A DAY
     Route: 048
  54. INSULIN HUMAN [Suspect]
     Active Substance: INSULIN HUMAN
     Dosage: UNK
     Route: 065
  55. LANTUS [Suspect]
     Active Substance: INSULIN GLARGINE
     Indication: PREMEDICATION
     Dosage: 8 INTERNATIONAL UNIT, ONCE A DAY
     Route: 058
  56. LOPERAMIDE [Concomitant]
     Active Substance: LOPERAMIDE
     Indication: PRODUCT USED FOR UNKNOWN INDICATION
     Dosage: 4 MILLIGRAM (TOTAL)
     Route: 048
     Dates: start: 20190407
  57. RATIOGRASTIM [Concomitant]
     Active Substance: FILGRASTIM
     Dosage: 48 MEGA?INTERNATIONAL UNIT, ONCE A DAY
     Route: 058
     Dates: start: 20190423
  58. SODIUM BICARBONATE. [Concomitant]
     Active Substance: SODIUM BICARBONATE
     Indication: PRODUCT USED FOR UNKNOWN INDICATION
     Dosage: 100 MILLILITER, ONCE A DAY
     Route: 042
     Dates: start: 20190405
  59. UROMITEXAN [Concomitant]
     Active Substance: MESNA
     Indication: PRODUCT USED FOR UNKNOWN INDICATION
     Dosage: 2664 MILLIGRAM, ONCE A DAY
     Route: 042
     Dates: start: 20190405

REACTIONS (5)
  - Deep vein thrombosis [Recovered/Resolved]
  - Embolism [Recovered/Resolved]
  - Platelet count decreased [Recovered/Resolved]
  - Pyrexia [Recovered/Resolved]
  - Hypoglycaemia [Recovered/Resolved]

NARRATIVE: CASE EVENT DATE: 20190413
